FAERS Safety Report 25238414 (Version 1)
Quarter: 2025Q2

REPORT INFORMATION
  Report Type: Spontaneous
  Country: US (occurrence: None)
  Receive Date: 20250424
  Receipt Date: 20250424
  Transmission Date: 20250717
  Serious: Yes (Death)
  Sender: FDA-CTU
  Company Number: None

PATIENT
  Age: 77 Year
  Sex: Male

DRUGS (2)
  1. LENALIDOMIDE [Suspect]
     Active Substance: LENALIDOMIDE
     Indication: Plasma cell myeloma
     Dosage: FREQUENCY : DAILY;?
     Route: 048
     Dates: start: 20241121, end: 20250322
  2. PRADAXA [Suspect]
     Active Substance: DABIGATRAN ETEXILATE MESYLATE

REACTIONS (9)
  - Humerus fracture [None]
  - Hypertension [None]
  - Encephalopathy [None]
  - Hypotension [None]
  - Anaemia [None]
  - Melaena [None]
  - Erosive oesophagitis [None]
  - Oesophagitis [None]
  - Dysphagia [None]

NARRATIVE: CASE EVENT DATE: 20250322
